FAERS Safety Report 16532010 (Version 3)
Quarter: 2019Q3

REPORT INFORMATION
  Report Type: Report from Study
  Country: US (occurrence: US)
  Receive Date: 20190704
  Receipt Date: 20190806
  Transmission Date: 20191004
  Serious: Yes (Hospitalization, Other)
  Sender: FDA-Public Use
  Company Number: US-GILEAD-2019-0416796

PATIENT
  Age: 71 Year
  Sex: Female
  Weight: 82.05 kg

DRUGS (33)
  1. POTASSIUM CHLORIDE. [Concomitant]
     Active Substance: POTASSIUM CHLORIDE
  2. ROSUVASTATIN. [Concomitant]
     Active Substance: ROSUVASTATIN
  3. SPIRONOLACTONE. [Concomitant]
     Active Substance: SPIRONOLACTONE
  4. TRAMADOL. [Concomitant]
     Active Substance: TRAMADOL
  5. ALBUTEROL SULFATE. [Concomitant]
     Active Substance: ALBUTEROL SULFATE
  6. LORAZEPAM. [Concomitant]
     Active Substance: LORAZEPAM
  7. MELATONIN [Concomitant]
     Active Substance: MELATONIN
  8. OMEPRAZOLE. [Concomitant]
     Active Substance: OMEPRAZOLE
  9. PRAMIPEXOLE. [Concomitant]
     Active Substance: PRAMIPEXOLE
  10. SILDENAFIL. [Concomitant]
     Active Substance: SILDENAFIL
  11. ACETAMINOPHEN. [Concomitant]
     Active Substance: ACETAMINOPHEN
  12. GLIPIZIDE. [Concomitant]
     Active Substance: GLIPIZIDE
  13. METOPROLOL SUCCINATE. [Concomitant]
     Active Substance: METOPROLOL SUCCINATE
  14. VITAMINS NOS [Concomitant]
     Active Substance: VITAMINS
  15. OLOPATADINE. [Concomitant]
     Active Substance: OLOPATADINE
  16. TORSEMIDE. [Concomitant]
     Active Substance: TORSEMIDE
  17. ASPIRIN [ACETYLSALICYLIC ACID] [Concomitant]
     Active Substance: ASPIRIN
  18. ACETYLSALICYLIC ACID;BUTALBITAL;CAFFEINE [Concomitant]
  19. CALCIUM CARBONATE AND VITAMIN D [Concomitant]
     Active Substance: CALCIUM CARBONATE\VITAMIN D
  20. FEXOFENADINE [Concomitant]
     Active Substance: FEXOFENADINE HYDROCHLORIDE
  21. LEVOTHYROXINE. [Concomitant]
     Active Substance: LEVOTHYROXINE
  22. SERTRALINE [Concomitant]
     Active Substance: SERTRALINE HYDROCHLORIDE
  23. AMBRISENTAN [Suspect]
     Active Substance: AMBRISENTAN
     Indication: PULMONARY HYPERTENSION
     Dosage: 5 MG
     Route: 065
     Dates: start: 20080307
  24. FLUTICASONE PROPIONATE AND SALMETEROL [Concomitant]
     Active Substance: FLUTICASONE PROPIONATE\SALMETEROL XINAFOATE
  25. SITAGLIPTIN [Concomitant]
     Active Substance: SITAGLIPTIN
  26. INSULIN GLARGINE [Concomitant]
     Active Substance: INSULIN GLARGINE
  27. ONDANSETRON [Concomitant]
     Active Substance: ONDANSETRON
  28. NALOXONE [Concomitant]
     Active Substance: NALOXONE
  29. ZOLPIDEM [Concomitant]
     Active Substance: ZOLPIDEM TARTRATE
  30. METOLAZONE. [Concomitant]
     Active Substance: METOLAZONE
  31. WARFARIN [Concomitant]
     Active Substance: WARFARIN
  32. AMITRIPTYLINE [Concomitant]
     Active Substance: AMITRIPTYLINE
  33. CALCITRIOL. [Concomitant]
     Active Substance: CALCITRIOL

REACTIONS (4)
  - Fall [Unknown]
  - Dyspnoea [Not Recovered/Not Resolved]
  - Renal failure [Unknown]
  - Neck injury [Unknown]

NARRATIVE: CASE EVENT DATE: 201906
